FAERS Safety Report 15120164 (Version 1)
Quarter: 2018Q3

REPORT INFORMATION
  Report Type: Spontaneous
  Country: US (occurrence: US)
  Receive Date: 20180613
  Receipt Date: 20180613
  Transmission Date: 20181010
  Serious: Yes (Other)
  Sender: FDA-Public Use
  Company Number: None

PATIENT
  Age: 15 Year
  Sex: Male
  Weight: 21 kg

DRUGS (8)
  1. CULTURELLE [Concomitant]
     Active Substance: LACTOBACILLUS RHAMNOSUS
     Dates: start: 20170517
  2. NEXIUM [Concomitant]
     Active Substance: ESOMEPRAZOLE MAGNESIUM
     Dates: start: 20170920
  3. TRANS?DERM SCOPE (SCOPALAMINE) [Concomitant]
     Dates: start: 20170521
  4. HIZENTRA [Suspect]
     Active Substance: HUMAN IMMUNOGLOBULIN G
     Indication: IMMUNODEFICIENCY
     Route: 058
     Dates: start: 20171212, end: 20180103
  5. PENTASA [Concomitant]
     Active Substance: MESALAMINE
     Dates: start: 20170621
  6. ACARBOSE. [Concomitant]
     Active Substance: ACARBOSE
     Dates: start: 20170517
  7. TRAZODONE [Concomitant]
     Active Substance: TRAZODONE HYDROCHLORIDE
     Dates: start: 20170517
  8. SACCHAROMYCES [Concomitant]
     Active Substance: SACCHAROMYCES CEREVISIAE
     Dates: start: 20170518

REACTIONS (4)
  - Dyspnoea [None]
  - Erythema [None]
  - Flushing [None]
  - Rash [None]

NARRATIVE: CASE EVENT DATE: 20180102
